FAERS Safety Report 12709236 (Version 1)
Quarter: 2016Q3

REPORT INFORMATION
  Report Type: Spontaneous
  Country: US (occurrence: None)
  Receive Date: 20160901
  Receipt Date: 20160901
  Transmission Date: 20161109
  Serious: Yes (Hospitalization)
  Sender: FDA-Public Use
  Company Number: None

PATIENT
  Age: 70 Year
  Sex: Female
  Weight: 77.11 kg

DRUGS (1)
  1. REGORAFENIB BAYER [Suspect]
     Active Substance: REGORAFENIB
     Indication: COLORECTAL CANCER
     Route: 048
     Dates: start: 20160830, end: 20160830

REACTIONS (5)
  - Cough [None]
  - Nausea [None]
  - Dyspnoea [None]
  - Pyrexia [None]
  - Dry mouth [None]

NARRATIVE: CASE EVENT DATE: 20160830
